FAERS Safety Report 23930948 (Version 1)
Quarter: 2024Q2

REPORT INFORMATION
  Report Type: Spontaneous
  Country: CN (occurrence: CN)
  Receive Date: 20240603
  Receipt Date: 20240603
  Transmission Date: 20240715
  Serious: Yes (Hospitalization)
  Sender: FDA-Public Use
  Company Number: CN-CHEPLA-2024006779

PATIENT
  Age: 28 Year
  Sex: Male

DRUGS (2)
  1. OLANZAPINE [Suspect]
     Active Substance: OLANZAPINE
     Indication: Mental disorder
     Dosage: 10MG OF OLANZAPINE DAILY EXCEEDING SIX MONTHS. ?DAILY DOSE: 10 MILLIGRAM
  2. LITHIUM CARBONATE [Suspect]
     Active Substance: LITHIUM CARBONATE
     Dosage: TAKING 300MG OF LITHIUM CARBONATE THREE TIMES A DAY.?DAILY DOSE: 900 MILLIGRAM

REACTIONS (9)
  - Coma [Recovered/Resolved]
  - Generalised tonic-clonic seizure [Not Recovered/Not Resolved]
  - Urinary retention [Unknown]
  - Nausea [Unknown]
  - Vomiting [Unknown]
  - Toxicity to various agents [Unknown]
  - Neuroleptic malignant syndrome [Unknown]
  - Brain oedema [Unknown]
  - Overdose [Unknown]
